FAERS Safety Report 4768775-X (Version None)
Quarter: 2005Q3

REPORT INFORMATION
  Report Type: 
  Country: None (occurrence: None)
  Receive Date: 20050913
  Receipt Date: 20050903
  Transmission Date: 20060218
  Serious: Yes (Other)
  Sender: FDA-Public Use
  Company Number: 2005120995

PATIENT
  Age: 44 Year
  Sex: Female
  Weight: 65.7716 kg

DRUGS (2)
  1. ZITHROMAX [Suspect]
     Indication: PNEUMONIA
     Dosage: 250 MG (250 MG, 1 IN 1D), ORAL
     Route: 048
     Dates: start: 20050301, end: 20050101
  2. SYNTHROID [Concomitant]

REACTIONS (2)
  - PARANOIA [None]
  - SWOLLEN TONGUE [None]
